FAERS Safety Report 24062031 (Version 1)
Quarter: 2024Q3

REPORT INFORMATION
  Report Type: Spontaneous
  Country: DE (occurrence: DE)
  Receive Date: 20240708
  Receipt Date: 20240708
  Transmission Date: 20241016
  Serious: Yes (Congenital Anomaly, Other)
  Sender: SANDOZ
  Company Number: DE-NOVPHSZ-PHHY2018DE091420

PATIENT

DRUGS (17)
  1. ATOSIBAN [Suspect]
     Active Substance: ATOSIBAN
     Indication: Foetal exposure during pregnancy
     Dosage: UNK
     Route: 064
  2. CLINDAMYCIN [Suspect]
     Active Substance: CLINDAMYCIN
     Indication: Foetal exposure during pregnancy
     Dosage: 600 MG, UNK
     Route: 064
  3. CLINDAMYCIN [Suspect]
     Active Substance: CLINDAMYCIN
     Indication: Antibiotic prophylaxis
  4. DESFLURANE [Suspect]
     Active Substance: DESFLURANE
     Indication: Foetal exposure during pregnancy
     Dosage: 3.9-4.6% VOL
     Route: 064
  5. DESFLURANE [Suspect]
     Active Substance: DESFLURANE
     Indication: Maintenance of anaesthesia
  6. EPINEPHRINE [Suspect]
     Active Substance: EPINEPHRINE
     Indication: Anaesthesia procedure
     Dosage: 0.01 MICRO-G/KG/MIN
     Route: 064
  7. EPINEPHRINE [Suspect]
     Active Substance: EPINEPHRINE
     Indication: Foetal exposure during pregnancy
     Dosage: 0.02 MICRO-G/KG/MIN
     Route: 064
  8. FENTANYL [Suspect]
     Active Substance: FENTANYL\FENTANYL CITRATE
     Indication: Foetal exposure during pregnancy
     Dosage: 0.2 MG, UNK
     Route: 064
  9. FENTANYL [Suspect]
     Active Substance: FENTANYL\FENTANYL CITRATE
     Indication: Endotracheal intubation
  10. GENTAMICIN SULFATE [Suspect]
     Active Substance: GENTAMICIN SULFATE
     Indication: Foetal exposure during pregnancy
     Dosage: 120 MG, UNK
     Route: 064
  11. GENTAMICIN SULFATE [Suspect]
     Active Substance: GENTAMICIN SULFATE
     Indication: Antibiotic prophylaxis
  12. REMIFENTANIL HYDROCHLORIDE [Suspect]
     Active Substance: REMIFENTANIL HYDROCHLORIDE
     Indication: Foetal exposure during pregnancy
     Dosage: 0.12 MICRO-G/KG/MIN
     Route: 064
  13. REMIFENTANIL HYDROCHLORIDE [Suspect]
     Active Substance: REMIFENTANIL HYDROCHLORIDE
     Indication: Maintenance of anaesthesia
  14. ROCURONIUM BROMIDE [Suspect]
     Active Substance: ROCURONIUM BROMIDE
     Indication: Maintenance of anaesthesia
     Dosage: 10 MG EACH, REPEATED DOSES
     Route: 064
  15. ROCURONIUM BROMIDE [Suspect]
     Active Substance: ROCURONIUM BROMIDE
     Indication: Foetal exposure during pregnancy
     Dosage: 70 MG, UNK
     Route: 064
  16. THIOPENTAL SODIUM [Suspect]
     Active Substance: THIOPENTAL SODIUM
     Indication: Foetal exposure during pregnancy
     Dosage: 450 MG, UNK
     Route: 064
  17. THIOPENTAL SODIUM [Suspect]
     Active Substance: THIOPENTAL SODIUM
     Indication: Endotracheal intubation

REACTIONS (3)
  - Congenital bladder anomaly [Unknown]
  - Anorectal disorder [Unknown]
  - Foetal exposure during pregnancy [Recovered/Resolved]
